FAERS Safety Report 7372370-6 (Version None)
Quarter: 2011Q1

REPORT INFORMATION
  Report Type: 
  Country: None (occurrence: None)
  Receive Date: 20110324
  Receipt Date: 20110318
  Transmission Date: 20110831
  Serious: Yes (Hospitalization, Other)
  Sender: FDA-Public Use
  Company Number: US-SANOFI-AVENTIS-2011SA017225

PATIENT
  Age: 46 Year
  Sex: Female

DRUGS (2)
  1. SOLOSTAR [Suspect]
  2. LANTUS [Suspect]
     Dosage: DOSE:25 UNIT(S)
     Route: 058

REACTIONS (1)
  - SYNCOPE [None]
